FAERS Safety Report 6481205-5 (Version None)
Quarter: 2009Q4

REPORT INFORMATION
  Report Type: 
  Country: None (occurrence: None)
  Receive Date: 20091208
  Receipt Date: 20090312
  Transmission Date: 20100525
  Serious: No
  Sender: FDA-Public Use
  Company Number: US-AMGEN-KDL338164

PATIENT
  Sex: Male

DRUGS (1)
  1. ENBREL [Suspect]
     Indication: PSORIASIS
     Dates: start: 20080320, end: 20090312

REACTIONS (8)
  - INFLUENZA LIKE ILLNESS [None]
  - INJECTION SITE PAIN [None]
  - INJECTION SITE SWELLING [None]
  - NASOPHARYNGITIS [None]
  - NAUSEA [None]
  - POSTNASAL DRIP [None]
  - PYREXIA [None]
  - SINUS CONGESTION [None]
